FAERS Safety Report 8471289-7 (Version None)
Quarter: 2012Q2

REPORT INFORMATION
  Report Type: 
  Country: None (occurrence: None)
  Receive Date: 20120621
  Receipt Date: 20120612
  Transmission Date: 20120825
  Serious: Yes (Life-Threatening, Other)
  Sender: FDA-Public Use
  Company Number: FK201201644

PATIENT
  Age: 50 Year
  Sex: Female

DRUGS (9)
  1. ANGIOMAX [Suspect]
     Dosage: PER HOUR, INTRAVENOUS (NOT OTHERWISE SPECIFIED)
     Route: 042
     Dates: start: 20120423
  2. FAMOTIDINE [Concomitant]
  3. HEPARIN SODIUM [Suspect]
     Indication: PRODUCT USED FOR UNKNOWN INDICATION
     Dosage: 1800 IU
     Dates: start: 20120421, end: 20120422
  4. CLOPIDEGREL [Concomitant]
  5. ANGIOMAX [Suspect]
     Indication: PERCUTANEOUS CORONARY INTERVENTION
     Dosage: 0.75 UG/KG, BOLUS, INTRAVENOUS BOLUS
     Route: 040
     Dates: start: 20120423
  6. INSULIN [Concomitant]
  7. ATENOLOL [Concomitant]
  8. FLUOXETINE [Concomitant]
  9. FENOFIBRATE [Concomitant]

REACTIONS (5)
  - CORONARY ARTERY THROMBOSIS [None]
  - HEPARIN-INDUCED THROMBOCYTOPENIA [None]
  - CARDIO-RESPIRATORY ARREST [None]
  - THROMBOSIS IN DEVICE [None]
  - HAEMORRHAGE [None]
